FAERS Safety Report 4368245-7 (Version None)
Quarter: 2004Q2

REPORT INFORMATION
  Report Type: 
  Country: None (occurrence: None)
  Receive Date: 20040525
  Receipt Date: 20040518
  Transmission Date: 20050107
  Serious: Yes (Death)
  Sender: FDA-Public Use
  Company Number: 2004211200US

PATIENT
  Age: 42 Year
  Sex: Male

DRUGS (5)
  1. XANAX [Suspect]
  2. COCAINE (COCAINE) [Suspect]
  3. DIAZEPAM [Suspect]
  4. METHADONE HCL [Suspect]
  5. ETHANOL (ETHANOL) [Suspect]

REACTIONS (6)
  - CARDIOMEGALY [None]
  - CORONARY ARTERY ATHEROSCLEROSIS [None]
  - DRUG TOXICITY [None]
  - LUNG DISORDER [None]
  - PULMONARY OEDEMA [None]
  - VENTRICULAR HYPERTROPHY [None]
